FAERS Safety Report 8011367-X (Version None)
Quarter: 2011Q4

REPORT INFORMATION
  Report Type: 
  Country: None (occurrence: None)
  Receive Date: 20111228
  Receipt Date: 20111228
  Transmission Date: 20120403
  Serious: No
  Sender: FDA-Public Use
  Company Number: None

PATIENT
  Age: 48 Year
  Sex: Female
  Weight: 63.502 kg

DRUGS (1)
  1. OFLOXACIN [Suspect]

REACTIONS (2)
  - PAIN IN EXTREMITY [None]
  - FEAR [None]
